FAERS Safety Report 4298733-3 (Version None)
Quarter: 2004Q1

REPORT INFORMATION
  Report Type: 
  Country: None (occurrence: None)
  Receive Date: 20040126
  Receipt Date: 20031029
  Transmission Date: 20041129
  Serious: No
  Sender: FDA-Public Use
  Company Number: USA031051044

PATIENT
  Age: 7 Year
  Sex: Male
  Weight: 35 kg

DRUGS (2)
  1. STRATTERA [Suspect]
     Indication: DISTURBANCE IN ATTENTION
     Dosage: 18 MG/DAY
     Dates: start: 20031025, end: 20031025
  2. LUVOX [Concomitant]

REACTIONS (2)
  - AGGRESSION [None]
  - AGITATION [None]
